FAERS Safety Report 7416224-5 (Version None)
Quarter: 2011Q2

REPORT INFORMATION
  Report Type: 
  Country: None (occurrence: None)
  Receive Date: 20110414
  Receipt Date: 20110405
  Transmission Date: 20111010
  Serious: Yes (Death, Hospitalization)
  Sender: FDA-Public Use
  Company Number: US-JNJFOC-20110403508

PATIENT
  Age: 44 Year
  Sex: Female

DRUGS (2)
  1. PARACETAMOL [Suspect]
     Indication: PRODUCT USED FOR UNKNOWN INDICATION
     Route: 048
  2. PARACETAMOL [Suspect]
     Route: 048

REACTIONS (9)
  - BLOOD LACTIC ACID INCREASED [None]
  - BLOOD CREATININE INCREASED [None]
  - UPPER GASTROINTESTINAL HAEMORRHAGE [None]
  - HYPOTENSION [None]
  - INTERNATIONAL NORMALISED RATIO INCREASED [None]
  - HAEMATOCRIT DECREASED [None]
  - HEPATIC NECROSIS [None]
  - OVERDOSE [None]
  - HAEMOGLOBIN DECREASED [None]
